FAERS Safety Report 13938985 (Version 1)
Quarter: 2017Q3

REPORT INFORMATION
  Report Type: Spontaneous
  Country: US (occurrence: US)
  Receive Date: 20170906
  Receipt Date: 20170906
  Transmission Date: 20171127
  Serious: No
  Sender: FDA-Public Use
  Company Number: US-TEVA-789839ACC

PATIENT
  Sex: Male

DRUGS (2)
  1. LABETALOL HCL- ^ACTAVIS^ [Suspect]
     Active Substance: LABETALOL HYDROCHLORIDE
     Indication: CARDIAC DISORDER
  2. LABETALOL HCL- ^ACTAVIS^ [Suspect]
     Active Substance: LABETALOL HYDROCHLORIDE
     Indication: HYPERTENSION
     Route: 065

REACTIONS (3)
  - Pain [Not Recovered/Not Resolved]
  - Arthralgia [Not Recovered/Not Resolved]
  - Myalgia [Not Recovered/Not Resolved]
